FAERS Safety Report 17293290 (Version 1)
Quarter: 2020Q1

REPORT INFORMATION
  Report Type: Spontaneous
  Country: GB (occurrence: GB)
  Receive Date: 20200119
  Receipt Date: 20200119
  Transmission Date: 20200409
  Serious: Yes (Death)
  Sender: FDA-Public Use
  Company Number: None

PATIENT
  Age: 14 Year
  Sex: Male

DRUGS (2)
  1. SINGULAIR [Suspect]
     Active Substance: MONTELUKAST SODIUM
     Indication: ASTHMA
     Route: 048
     Dates: start: 20170201, end: 20180211
  2. SINGULAIR [Suspect]
     Active Substance: MONTELUKAST SODIUM
     Indication: ASTHMA EXERCISE INDUCED
     Route: 048
     Dates: start: 20170201, end: 20180211

REACTIONS (6)
  - Paranoia [None]
  - Poor quality sleep [None]
  - Insomnia [None]
  - Completed suicide [None]
  - Intentional self-injury [None]
  - Anger [None]

NARRATIVE: CASE EVENT DATE: 20180211
